FAERS Safety Report 4831492-1 (Version None)
Quarter: 2005Q4

REPORT INFORMATION
  Report Type: 
  Country: None (occurrence: None)
  Receive Date: 20051116
  Receipt Date: 20051101
  Transmission Date: 20060501
  Serious: Yes (Life-Threatening)
  Sender: FDA-Public Use
  Company Number: 33001

PATIENT
  Sex: Male

DRUGS (2)
  1. TRAVATAN [Suspect]
  2. BETA  BLOCKER (UNSPECIFIED) [Concomitant]

REACTIONS (1)
  - ATRIOVENTRICULAR BLOCK [None]
